FAERS Safety Report 14477405 (Version 1)
Quarter: 2018Q1

REPORT INFORMATION
  Report Type: Report from Study
  Country: US (occurrence: US)
  Receive Date: 20180201
  Receipt Date: 20180201
  Transmission Date: 20180509
  Serious: No
  Sender: FDA-Public Use
  Company Number: US-EXELIXIS-CABO-17011478

PATIENT
  Age: 67 Year
  Sex: Male

DRUGS (7)
  1. SENOKOT [Concomitant]
     Active Substance: SENNOSIDES
  2. CABOMETYX [Suspect]
     Active Substance: CABOZANTINIB S-MALATE
     Indication: RENAL CANCER
     Dosage: 20 MG, QD
     Route: 048
     Dates: start: 20170119
  3. CABOMETYX [Suspect]
     Active Substance: CABOZANTINIB S-MALATE
     Dosage: 60 MG, QD
     Route: 048
  4. FERROUS SULFATE. [Concomitant]
     Active Substance: FERROUS SULFATE
  5. OXYCODONE [Concomitant]
     Active Substance: OXYCODONE
  6. LOVENOX [Concomitant]
     Active Substance: ENOXAPARIN SODIUM
  7. COLACE [Concomitant]
     Active Substance: DOCUSATE SODIUM

REACTIONS (2)
  - Loss of personal independence in daily activities [Unknown]
  - Somnolence [Unknown]

NARRATIVE: CASE EVENT DATE: 20171127
